FAERS Safety Report 9633216 (Version 1)
Quarter: 2013Q4

REPORT INFORMATION
  Report Type: Spontaneous
  Country: US (occurrence: None)
  Receive Date: 20131018
  Receipt Date: 20131018
  Transmission Date: 20140711
  Serious: No
  Sender: FDA-Public Use
  Company Number: None

PATIENT
  Age: 16 Year
  Sex: Male
  Weight: 102.06 kg

DRUGS (4)
  1. METHYLPHENIDATE ER [Suspect]
     Indication: ATTENTION DEFICIT/HYPERACTIVITY DISORDER
     Route: 048
     Dates: start: 20130701, end: 20131014
  2. PREVACID 15MG [Concomitant]
  3. CEFADROXIL 500 MG [Concomitant]
  4. METHYLPHENIDATE 10 MG [Concomitant]

REACTIONS (3)
  - Product substitution issue [None]
  - Drug effect decreased [None]
  - Irritability [None]
